FAERS Safety Report 9471756 (Version 1)
Quarter: 2013Q3

REPORT INFORMATION
  Report Type: Spontaneous
  Country: US (occurrence: US)
  Receive Date: 20130822
  Receipt Date: 20130822
  Transmission Date: 20140515
  Serious: Yes (Hospitalization)
  Sender: FDA-Public Use
  Company Number: US-GLAXOSMITHKLINE-A1038313A

PATIENT
  Age: 24 Year
  Sex: Male

DRUGS (3)
  1. LAMICTAL [Suspect]
     Indication: CONVULSION
     Dosage: 150MG TWICE PER DAY
     Route: 048
     Dates: start: 2008
  2. KEPPRA [Suspect]
     Dosage: 1875MG PER DAY
     Route: 048
     Dates: start: 2003
  3. NO CONCURRENT MEDICATION [Concomitant]

REACTIONS (2)
  - Convulsion [Recovered/Resolved]
  - Weight increased [Unknown]
